FAERS Safety Report 6112204-0 (Version None)
Quarter: 2009Q1

REPORT INFORMATION
  Report Type: 
  Country: None (occurrence: None)
  Receive Date: 20090310
  Receipt Date: 20090303
  Transmission Date: 20090719
  Serious: Yes (Death)
  Sender: FDA-Public Use
  Company Number: 2009AL001183

PATIENT
  Sex: Female

DRUGS (1)
  1. DIGOXIN [Suspect]
     Indication: HEART RATE INCREASED
     Dosage: PO
     Route: 048
     Dates: start: 20080301

REACTIONS (5)
  - ASTHENIA [None]
  - DIARRHOEA [None]
  - DIZZINESS [None]
  - MULTIPLE INJURIES [None]
  - VOMITING [None]
